FAERS Safety Report 23468263 (Version 3)
Quarter: 2024Q1

REPORT INFORMATION
  Report Type: Report from Study
  Country: US (occurrence: US)
  Receive Date: 20240201
  Receipt Date: 20240228
  Transmission Date: 20240409
  Serious: Yes (Hospitalization)
  Sender: FDA-Public Use
  Company Number: US-ABBVIE-5611827

PATIENT
  Sex: Female

DRUGS (4)
  1. SKYRIZI [Suspect]
     Active Substance: RISANKIZUMAB-RZAA
     Indication: Psoriasis
     Dosage: FORM STRENGTH: 150 MILLIGRAM/MILLILITERS?WEEK 0
     Route: 058
     Dates: start: 20231010, end: 20231010
  2. SKYRIZI [Suspect]
     Active Substance: RISANKIZUMAB-RZAA
     Dosage: FORM STRENGTH: 150 MILLIGRAM/MILLILITERS?WEEK 4
     Route: 058
     Dates: start: 202311, end: 202311
  3. SKYRIZI [Suspect]
     Active Substance: RISANKIZUMAB-RZAA
     Dosage: FORM STRENGTH: 150 MILLIGRAM/MILLILITERS?WEEK 8
     Route: 058
     Dates: start: 20231211
  4. SKYRIZI [Suspect]
     Active Substance: RISANKIZUMAB-RZAA
     Dosage: LAST ADMIN DATE: 2023
     Route: 058
     Dates: start: 20231029

REACTIONS (12)
  - Septic shock [Recovered/Resolved]
  - Fatigue [Unknown]
  - Loss of consciousness [Unknown]
  - Alopecia [Not Recovered/Not Resolved]
  - Urinary tract infection [Recovered/Resolved]
  - Headache [Recovering/Resolving]
  - Intentional product misuse [Unknown]
  - Psoriasis [Not Recovered/Not Resolved]
  - Tremor [Unknown]
  - Thyroid disorder [Unknown]
  - Stress [Unknown]
  - Unevaluable event [Unknown]

NARRATIVE: CASE EVENT DATE: 20230101
